FAERS Safety Report 21215503 (Version 3)
Quarter: 2022Q4

REPORT INFORMATION
  Report Type: Report from Study
  Country: CA (occurrence: CA)
  Receive Date: 20220816
  Receipt Date: 20221004
  Transmission Date: 20230113
  Serious: Yes (Other)
  Sender: FDA-Public Use
  Company Number: CA-TAKEDA-2022TUS011228

PATIENT
  Age: 75 Year
  Sex: Female

DRUGS (2)
  1. IXAZOMIB [Suspect]
     Active Substance: IXAZOMIB
     Indication: Plasma cell myeloma
     Dosage: 3 MILLIGRAM
     Route: 048
     Dates: start: 20210903
  2. IXAZOMIB [Suspect]
     Active Substance: IXAZOMIB
     Dosage: 2.3 MILLIGRAM
     Route: 065

REACTIONS (12)
  - Nephrolithiasis [Unknown]
  - Blood iron decreased [Unknown]
  - Renal colic [Unknown]
  - Somnolence [Unknown]
  - Chills [Unknown]
  - Tremor [Unknown]
  - Dysphagia [Unknown]
  - Neck pain [Unknown]
  - Asthenia [Unknown]
  - Pain in extremity [Unknown]
  - Pyrexia [Unknown]
  - Drug ineffective [Unknown]
